FAERS Safety Report 10190133 (Version 1)
Quarter: 2014Q2

REPORT INFORMATION
  Report Type: Spontaneous
  Country: US (occurrence: US)
  Receive Date: 20140522
  Receipt Date: 20140522
  Transmission Date: 20141212
  Serious: Yes (Congenital Anomaly)
  Sender: FDA-Public Use
  Company Number: US-ELI_LILLY_AND_COMPANY-US201405004759

PATIENT
  Sex: 0

DRUGS (1)
  1. CYMBALTA [Suspect]
     Indication: PRODUCT USED FOR UNKNOWN INDICATION
     Dosage: 60MG, UNK
     Route: 064
     Dates: start: 20120112

REACTIONS (8)
  - Bicuspid aortic valve [Unknown]
  - Coarctation of the aorta [Unknown]
  - Ventricular septal defect [Unknown]
  - Cardiac murmur functional [Unknown]
  - Tricuspid valve incompetence [Unknown]
  - Cardiomegaly [Unknown]
  - Pulmonary oedema neonatal [Unknown]
  - Foetal exposure during pregnancy [Unknown]
